FAERS Safety Report 7619351-2 (Version None)
Quarter: 2011Q3

REPORT INFORMATION
  Report Type: 
  Country: None (occurrence: None)
  Receive Date: 20110719
  Receipt Date: 20110708
  Transmission Date: 20111222
  Serious: Yes (Death, Other)
  Sender: FDA-Public Use
  Company Number: GB-AMGEN-GBRCT2011032309

PATIENT
  Age: 61 Year
  Sex: Male
  Weight: 65.3 kg

DRUGS (10)
  1. CO-DYDRAMOL [Concomitant]
     Dosage: UNK
     Route: 065
  2. VENTOLIN [Concomitant]
     Route: 048
  3. BECLOMETHASONE DIPROPIONATE [Concomitant]
     Dosage: UNK
     Route: 048
  4. ETANERCEPT [Suspect]
     Indication: RHEUMATOID ARTHRITIS
     Dosage: 50 MG, QWK
     Route: 058
     Dates: start: 20040705, end: 20070726
  5. PREDNISOLONE [Concomitant]
     Dosage: UNK
     Route: 065
  6. METHOTREXATE SODIUM [Suspect]
     Indication: RHEUMATOID ARTHRITIS
     Dosage: 7.5 MG, WEEKLY
     Route: 048
     Dates: start: 19961001, end: 20070701
  7. VITAMIN C                          /00008001/ [Concomitant]
     Dosage: UNK
     Route: 065
  8. FOLIC ACID [Concomitant]
     Dosage: 10 MG, WEEKLY
     Route: 048
     Dates: start: 20020501
  9. CALCICHEW-D3 [Concomitant]
     Dosage: 2 DF, 1X/DAY
     Route: 048
  10. TRAMADOL HCL [Concomitant]
     Dosage: UNK
     Route: 065

REACTIONS (1)
  - LUNG CANCER METASTATIC [None]
